FAERS Safety Report 18728161 (Version 1)
Quarter: 2021Q1

REPORT INFORMATION
  Report Type: Spontaneous
  Country: US (occurrence: US)
  Receive Date: 20210111
  Receipt Date: 20210111
  Transmission Date: 20210419
  Serious: Yes (Other)
  Sender: FDA-Public Use
  Company Number: US-MAIA PHARMACEUTICALS, INC.-MAI202012-000071

PATIENT
  Age: 63 Year
  Sex: Male

DRUGS (5)
  1. LEVOTHYROXINE SODIUM. [Suspect]
     Active Substance: LEVOTHYROXINE SODIUM
     Indication: POST PROCEDURAL HYPOTHYROIDISM
     Dosage: UNKNOWN
  2. LEVOTHYROXINE SODIUM. [Suspect]
     Active Substance: LEVOTHYROXINE SODIUM
     Dosage: UNKNOWN
  3. LEVOTHYROXINE SODIUM. [Suspect]
     Active Substance: LEVOTHYROXINE SODIUM
     Dosage: UNKNOWN
     Route: 048
  4. LEVOTHYROXINE SODIUM. [Suspect]
     Active Substance: LEVOTHYROXINE SODIUM
     Dosage: UNKNOWN
  5. LEVOTHYROXINE SODIUM. [Suspect]
     Active Substance: LEVOTHYROXINE SODIUM
     Dosage: SINGLE DOSE
     Route: 048

REACTIONS (5)
  - Product use in unapproved indication [Unknown]
  - Treatment noncompliance [Unknown]
  - Hypersensitivity [Unknown]
  - Urticaria chronic [Recovered/Resolved]
  - Angioedema [Unknown]
